FAERS Safety Report 11898299 (Version 4)
Quarter: 2016Q1

REPORT INFORMATION
  Report Type: Spontaneous
  Country: NL (occurrence: NL)
  Receive Date: 20160108
  Receipt Date: 20160125
  Transmission Date: 20160526
  Serious: Yes (Hospitalization)
  Sender: FDA-Public Use
  Company Number: NL-009507513-1601NLD001029

PATIENT
  Age: 67 Year
  Sex: Female
  Weight: 62 kg

DRUGS (2)
  1. AERIUS [Concomitant]
     Active Substance: DESLORATADINE
     Dosage: 1 TIME PER DAY ONE PIECE(S)
     Route: 048
     Dates: start: 2000
  2. SIMVASTATIN. [Suspect]
     Active Substance: SIMVASTATIN
     Indication: HYPERCHOLESTEROLAEMIA
     Dosage: UNK
     Route: 048
     Dates: start: 20151031, end: 20151130

REACTIONS (4)
  - Cardiac disorder [Recovered/Resolved]
  - Blood pressure increased [Recovered/Resolved with Sequelae]
  - Fatigue [Recovering/Resolving]
  - Confusional state [Recovering/Resolving]

NARRATIVE: CASE EVENT DATE: 20151103
